FAERS Safety Report 24042388 (Version 2)
Quarter: 2024Q3

REPORT INFORMATION
  Report Type: Spontaneous
  Country: US (occurrence: US)
  Receive Date: 20240702
  Receipt Date: 20240705
  Transmission Date: 20241017
  Serious: Yes (Hospitalization, Other)
  Sender: BAUSCH AND LOMB
  Company Number: US-BAUSCH-BL-2024-010156

PATIENT
  Age: 18 Year
  Sex: Female

DRUGS (1)
  1. BUPROPION [Suspect]
     Active Substance: BUPROPION
     Indication: Depression
     Dosage: EXTENDED RELASE
     Route: 048

REACTIONS (21)
  - Circulatory collapse [Recovered/Resolved]
  - Apnoea [Recovered/Resolved]
  - Pulseless electrical activity [Recovered/Resolved]
  - Areflexia [Recovered/Resolved]
  - Pupil fixed [Recovered/Resolved]
  - Hypokinesia [Recovered/Resolved]
  - Right ventricular ejection fraction decreased [Recovered/Resolved]
  - Toxicity to various agents [Recovered/Resolved]
  - Cardiotoxicity [Recovered/Resolved]
  - Cardiac arrest [Recovered/Resolved]
  - Ventricular dysfunction [Recovered/Resolved]
  - Cardiogenic shock [Recovered/Resolved]
  - Haemodynamic instability [Recovered/Resolved]
  - Sinus rhythm [Recovered/Resolved]
  - Mydriasis [Recovered/Resolved]
  - Bundle branch block left [Recovered/Resolved]
  - Status epilepticus [Recovered/Resolved]
  - Ventricular tachycardia [Recovered/Resolved]
  - Generalised tonic-clonic seizure [Recovered/Resolved]
  - Ventricular arrhythmia [Recovered/Resolved]
  - Intentional overdose [Unknown]
